FAERS Safety Report 8331653-3 (Version None)
Quarter: 2012Q2

REPORT INFORMATION
  Report Type: 
  Country: None (occurrence: None)
  Receive Date: 20120502
  Receipt Date: 20110531
  Transmission Date: 20120825
  Serious: No
  Sender: FDA-Public Use
  Company Number: US-ASTRAZENECA-2011SE33891

PATIENT
  Age: 66 Year
  Sex: Female

DRUGS (1)
  1. ENTOCORT EC [Suspect]
     Indication: CROHN'S DISEASE
     Route: 048
     Dates: start: 20110523

REACTIONS (1)
  - DRUG EFFECT DECREASED [None]
